FAERS Safety Report 23326186 (Version 3)
Quarter: 2024Q4

REPORT INFORMATION
  Report Type: Report from Study
  Country: DO (occurrence: DO)
  Receive Date: 20231221
  Receipt Date: 20241016
  Transmission Date: 20250114
  Serious: Yes (Other)
  Sender: MYLAN
  Company Number: DO-MYLANLABS-2023M1135520

PATIENT
  Sex: Female
  Weight: 78.01 kg

DRUGS (6)
  1. LIPITOR [Suspect]
     Active Substance: ATORVASTATIN CALCIUM
     Indication: Blood cholesterol
     Dosage: 40 MILLIGRAM, QD (1 TABLET), 30 TABLETS, 3 YEARS AGO
     Route: 048
     Dates: start: 20100617
  2. LIPITOR [Suspect]
     Active Substance: ATORVASTATIN CALCIUM
     Indication: Blood cholesterol
     Dosage: 1 DOSAGE FORM, QD, 80 MILLIGRAM, QD (1 TABLET), 14 TABLETS, 13 YEARS AGO
     Route: 048
     Dates: start: 2011
  3. LIPITOR [Suspect]
     Active Substance: ATORVASTATIN CALCIUM
     Indication: Product used for unknown indication
     Dosage: 20 MILLIGRAM
     Route: 048
     Dates: start: 20100617
  4. NORVASC [Suspect]
     Active Substance: AMLODIPINE BESYLATE
     Indication: Blood pressure increased
     Dosage: 5 MILLIGRAM, QD (1 TABLET), 30 TABLETS
     Route: 048
     Dates: start: 20100617
  5. JANUMET [Suspect]
     Active Substance: METFORMIN HYDROCHLORIDE\SITAGLIPTIN PHOSPHATE
     Dosage: 1 DOSAGE FORM, QD (DAILY)
     Route: 048
  6. INVOKANA [Suspect]
     Active Substance: CANAGLIFLOZIN
     Dosage: 1 DOSAGE FORM, QD
     Route: 048

REACTIONS (6)
  - Stent placement [Not Recovered/Not Resolved]
  - Diabetes mellitus [Not Recovered/Not Resolved]
  - Arterial catheterisation [Not Recovered/Not Resolved]
  - Fall [Not Recovered/Not Resolved]
  - Dysphonia [Not Recovered/Not Resolved]
  - Blood pressure abnormal [Not Recovered/Not Resolved]
